FAERS Safety Report 11532664 (Version 2)
Quarter: 2015Q4

REPORT INFORMATION
  Report Type: Spontaneous
  Country: US (occurrence: US)
  Receive Date: 20150921
  Receipt Date: 20151008
  Transmission Date: 20160304
  Serious: Yes (Hospitalization)
  Sender: FDA-Public Use
  Company Number: US-TAKEDA-2015TUS012342

PATIENT

DRUGS (3)
  1. ENTYVIO [Suspect]
     Active Substance: VEDOLIZUMAB
     Indication: CROHN^S DISEASE
     Dosage: 300 MG, UNK
     Route: 065
     Dates: start: 2015, end: 20150817
  2. INTESTINEX [Concomitant]
  3. CORTIZONE                          /00028601/ [Concomitant]
     Active Substance: HYDROCORTISONE

REACTIONS (2)
  - Crohn^s disease [Unknown]
  - Peripheral swelling [Not Recovered/Not Resolved]
